FAERS Safety Report 6988719-X (Version None)
Quarter: 2010Q3

REPORT INFORMATION
  Report Type: 
  Country: None (occurrence: None)
  Receive Date: 20100916
  Receipt Date: 20100911
  Transmission Date: 20110219
  Serious: Yes (Death, Hospitalization)
  Sender: FDA-Public Use
  Company Number: US-CELGENEUS-163-21880-10090978

PATIENT
  Sex: Male

DRUGS (6)
  1. REVLIMID [Suspect]
     Route: 048
     Dates: start: 20100618, end: 20100812
  2. CETUXIMAB [Suspect]
     Route: 051
     Dates: start: 20100618, end: 20100730
  3. TAXOL [Concomitant]
     Indication: PRODUCT USED FOR UNKNOWN INDICATION
     Route: 065
     Dates: start: 20100901
  4. AUGMENTIN '125' [Concomitant]
     Indication: INFECTION
     Route: 065
     Dates: start: 20100801
  5. FLAGYL [Concomitant]
     Indication: INFECTION
     Route: 065
     Dates: start: 20100801
  6. CARBOPLATIN [Concomitant]
     Indication: PRODUCT USED FOR UNKNOWN INDICATION
     Route: 065
     Dates: start: 20100901

REACTIONS (5)
  - DEATH [None]
  - DEEP VEIN THROMBOSIS [None]
  - NEUTROPENIA [None]
  - PYREXIA [None]
  - SEPSIS [None]
